FAERS Safety Report 7256718-9 (Version None)
Quarter: 2011Q1

REPORT INFORMATION
  Report Type: 
  Country: None (occurrence: None)
  Receive Date: 20110129
  Receipt Date: 20100709
  Transmission Date: 20110831
  Serious: No
  Sender: FDA-Public Use
  Company Number: US-ABBOTT-10P-163-0656828-00

PATIENT
  Sex: Female
  Weight: 87.168 kg

DRUGS (10)
  1. CENTRUM SILVER [Concomitant]
  2. FOLIC ACID [Concomitant]
  3. CELEBREX [Concomitant]
  4. SERTRALINE HYDROCHLORIDE [Concomitant]
  5. BENICAR [Concomitant]
  6. SIMVASTATIN [Concomitant]
  7. DILTIAZEM [Concomitant]
  8. CALCIUM WITH VITAMIN D [Concomitant]
  9. COZAAR [Concomitant]
  10. HUMIRA [Suspect]
     Indication: RHEUMATOID ARTHRITIS
     Route: 058
     Dates: start: 20080325, end: 20100601

REACTIONS (2)
  - DRUG INEFFECTIVE [None]
  - RHEUMATOID ARTHRITIS [None]
